FAERS Safety Report 6774042-5 (Version None)
Quarter: 2010Q2

REPORT INFORMATION
  Report Type: 
  Country: None (occurrence: None)
  Receive Date: 20100617
  Receipt Date: 20100603
  Transmission Date: 20101027
  Serious: Yes (Other)
  Sender: FDA-Public Use
  Company Number: PHHY2010NL36483

PATIENT
  Sex: Female
  Weight: 48 kg

DRUGS (11)
  1. ACLASTA [Suspect]
     Indication: OSTEOPOROSIS
     Dosage: 5 MG PER YEAR
     Route: 042
     Dates: start: 20090115
  2. ACLASTA [Suspect]
     Dosage: 5 MG PER YEAR
     Route: 042
     Dates: start: 20100101
  3. CALCICHEW D3 [Concomitant]
     Dosage: 500 MG/400IE ONE DAILY DOSE
  4. PREDNISONE [Concomitant]
     Dosage: 15 MG/DAY
  5. NEXIUM [Concomitant]
     Dosage: 40 MG/DAY
  6. FUROSEMIDE [Concomitant]
     Dosage: 40 MG, ONE DAILY DOSE
  7. AZATHIOPRINE [Concomitant]
     Dosage: 75 MG/DAY
  8. SPIRONOLACTONE [Concomitant]
     Dosage: 100 MG, ONE DAILY DOSE
  9. CALCIFEROL [Concomitant]
     Dosage: UNK
     Dates: start: 20070701
  10. CALCIUM CARBONATE [Concomitant]
     Dosage: UNK
     Dates: start: 20070701
  11. NEXIUM [Concomitant]
     Dosage: UNK
     Dates: start: 20070101

REACTIONS (15)
  - ACTINOMYCOSIS [None]
  - BONE DISORDER [None]
  - DENTAL CARIES [None]
  - DENTAL CLEANING [None]
  - GINGIVAL DISORDER [None]
  - JAW DISORDER [None]
  - LOOSE TOOTH [None]
  - NECROTISING ULCERATIVE PERIODONTITIS [None]
  - OSTEITIS [None]
  - OSTEOMYELITIS [None]
  - OSTEONECROSIS OF JAW [None]
  - PAIN IN JAW [None]
  - SEQUESTRECTOMY [None]
  - SWELLING [None]
  - TOOTH EXTRACTION [None]
